FAERS Safety Report 15966531 (Version 1)
Quarter: 2019Q1

REPORT INFORMATION
  Report Type: Spontaneous
  Country: US (occurrence: US)
  Receive Date: 20190215
  Receipt Date: 20190215
  Transmission Date: 20190418
  Serious: No
  Sender: FDA-Public Use
  Company Number: US-009507513-1901USA007180

PATIENT
  Age: 62 Year
  Sex: Male

DRUGS (1)
  1. PRIMAXIN IV [Suspect]
     Active Substance: CILASTATIN SODIUM\IMIPENEM
     Indication: PANCREATITIS ACUTE
     Dosage: UNK

REACTIONS (1)
  - Off label use [Unknown]
